FAERS Safety Report 4786857-3 (Version None)
Quarter: 2005Q3

REPORT INFORMATION
  Report Type: 
  Country: None (occurrence: None)
  Receive Date: 20050930
  Receipt Date: 20050906
  Transmission Date: 20060218
  Serious: Yes (Other)
  Sender: FDA-Public Use
  Company Number: ENT 2005-0130

PATIENT
  Age: 68 Year
  Sex: Female

DRUGS (13)
  1. COMTAN [Suspect]
     Dosage: 200 MG QD ORAL  4 MONTHS AGO - 1 MONTH AGO
     Route: 048
  2. SINEMET [Concomitant]
  3. LORAX [Concomitant]
  4. LIORESAL [Concomitant]
  5. HALDOL [Concomitant]
  6. ANAFRANIL [Concomitant]
  7. TYLEX [Concomitant]
  8. CODEINE [Concomitant]
  9. TEGRETOL [Concomitant]
  10. CLONAZEPAM [Concomitant]
  11. CATAFLAM [Concomitant]
  12. AMITRIPTYLINE HCL [Concomitant]
  13. DIMORF (MORPHINE SULFATE) [Concomitant]

REACTIONS (8)
  - ATROPHY [None]
  - DELIRIUM [None]
  - DEPRESSION [None]
  - DRUG INEFFECTIVE [None]
  - DRUG INTERACTION [None]
  - MUSCLE RIGIDITY [None]
  - NEURALGIA [None]
  - TREMOR [None]
